FAERS Safety Report 6509948-5 (Version None)
Quarter: 2009Q4

REPORT INFORMATION
  Report Type: 
  Country: None (occurrence: None)
  Receive Date: 20091222
  Receipt Date: 20091217
  Transmission Date: 20100525
  Serious: Yes (Death, Other)
  Sender: FDA-Public Use
  Company Number: PHHY2009JP56718

PATIENT
  Sex: Male
  Weight: 47 kg

DRUGS (8)
  1. DIOVAN [Suspect]
     Indication: HYPERTENSION
     Dosage: 40 MG, QD
     Route: 048
     Dates: start: 20070927, end: 20071205
  2. DIOVAN [Suspect]
     Dosage: 80 MG, QD
     Route: 048
     Dates: start: 20071206, end: 20080326
  3. DIOVAN [Suspect]
     Dosage: 160 MG, QD
     Route: 048
     Dates: start: 20080327
  4. SPIRONOLACTONE [Concomitant]
     Indication: HYPERTENSION
     Dosage: 25 MG, UNK
     Route: 048
     Dates: start: 20081226
  5. AMLODIN [Concomitant]
     Indication: HYPERTENSION
     Dosage: 2.5 MG, UNK
     Route: 048
     Dates: start: 20080717
  6. AMLODIN [Concomitant]
     Dosage: 2.5 MG, UNK
     Route: 048
  7. PRAMIPEXOLE DIHYDROCHLORIDE [Concomitant]
     Dosage: 1 MG, UNK
     Route: 048
     Dates: start: 20070614
  8. CARBIDOPA AND LEVODOPA [Concomitant]
     Dosage: 300 MG, UNK
     Route: 048
     Dates: start: 20070614

REACTIONS (2)
  - FRACTURE [None]
  - RENAL FAILURE [None]
